FAERS Safety Report 10872583 (Version 1)
Quarter: 2015Q1

REPORT INFORMATION
  Report Type: Spontaneous
  Country: FR (occurrence: FR)
  Receive Date: 20150227
  Receipt Date: 20150227
  Transmission Date: 20150721
  Serious: Yes (Death, Other)
  Sender: FDA-Public Use
  Company Number: FR-BRISTOL-MYERS SQUIBB COMPANY-BMS-2015-009905

PATIENT

DRUGS (1)
  1. YERVOY [Suspect]
     Active Substance: IPILIMUMAB
     Indication: PRODUCT USED FOR UNKNOWN INDICATION
     Route: 065

REACTIONS (7)
  - Metastases to central nervous system [Fatal]
  - General physical health deterioration [Unknown]
  - Asthenia [Unknown]
  - Diarrhoea [Unknown]
  - Pulmonary embolism [Unknown]
  - Dehydration [Unknown]
  - Weight decreased [Unknown]
